FAERS Safety Report 6657457-5 (Version None)
Quarter: 2010Q1

REPORT INFORMATION
  Report Type: 
  Country: None (occurrence: None)
  Receive Date: 20100330
  Receipt Date: 20100317
  Transmission Date: 20100710
  Serious: Yes (Hospitalization, Other)
  Sender: FDA-Public Use
  Company Number: PHHY2010TW01648

PATIENT
  Sex: Female
  Weight: 44 kg

DRUGS (1)
  1. ACLASTA/ZOLEDRONATE T29581+A++OS [Suspect]
     Indication: OSTEOPOROSIS
     Dosage: 5 MG
     Route: 042
     Dates: start: 20091217

REACTIONS (7)
  - DEBRIDEMENT [None]
  - HYPOALBUMINAEMIA [None]
  - INFLAMMATION OF WOUND [None]
  - OSTEOMYELITIS [None]
  - SEPSIS [None]
  - SEQUESTRECTOMY [None]
  - WOUND ABSCESS [None]
